FAERS Safety Report 12351495 (Version 1)
Quarter: 2016Q2

REPORT INFORMATION
  Report Type: Spontaneous
  Country: FR (occurrence: FR)
  Receive Date: 20160510
  Receipt Date: 20160510
  Transmission Date: 20160815
  Serious: Yes (Death)
  Sender: FDA-Public Use
  Company Number: FR-JNJFOC-20160503184

PATIENT
  Age: 50 Year
  Sex: Female

DRUGS (23)
  1. HEPATITIS B SURFACE ANTIGEN [Concomitant]
     Active Substance: HEPATITIS B VIRUS HBSAG SURFACE PROTEIN ANTIGEN
     Route: 065
     Dates: start: 20160303, end: 20160303
  2. VALIUM [Concomitant]
     Active Substance: DIAZEPAM
     Route: 048
     Dates: start: 20160211
  3. KARDEGIC [Concomitant]
     Active Substance: ASPIRIN LYSINE
     Route: 065
  4. DAFALGAN [Concomitant]
     Active Substance: ACETAMINOPHEN
     Route: 065
  5. COUMADINE [Suspect]
     Active Substance: WARFARIN SODIUM
     Indication: CARDIAC PACEMAKER INSERTION
     Route: 048
  6. TIAPRIDAL [Suspect]
     Active Substance: TIAPRIDE HYDROCHLORIDE
     Indication: CONFUSIONAL STATE
     Route: 048
     Dates: start: 20160208, end: 20160311
  7. RIVOTRIL [Concomitant]
     Active Substance: CLONAZEPAM
     Route: 065
  8. RISPERDAL [Suspect]
     Active Substance: RISPERIDONE
     Indication: AGITATION
     Route: 048
     Dates: start: 20160216, end: 20160229
  9. SIFROL [Suspect]
     Active Substance: PRAMIPEXOLE
     Indication: PRODUCT USED FOR UNKNOWN INDICATION
     Route: 065
     Dates: end: 20160208
  10. PREVNAR 13 [Concomitant]
     Active Substance: PNEUMOCOCCAL 13-VALENT CONJUGATE VACCINE
     Route: 065
     Dates: start: 20160303, end: 20160303
  11. RISPERDAL [Suspect]
     Active Substance: RISPERIDONE
     Indication: AGITATION
     Route: 048
     Dates: start: 20160301, end: 20160314
  12. MENINGITEC [Concomitant]
     Active Substance: NEISSERIA MENINGITIDIS GROUP C CAPSULAR POLYSACCHARIDE ANTIGEN
     Route: 065
     Dates: start: 20160304, end: 20160304
  13. LASILIX [Concomitant]
     Active Substance: FUROSEMIDE
     Route: 065
  14. OFLOXACIN. [Suspect]
     Active Substance: OFLOXACIN
     Indication: OTORRHOEA
     Route: 065
     Dates: start: 20160305, end: 20160311
  15. CORTANCYL [Concomitant]
     Active Substance: PREDNISONE
     Route: 065
  16. OROCAL D3 [Concomitant]
     Active Substance: CALCIUM CARBONATE\CHOLECALCIFEROL
     Route: 065
  17. CYMBALTA [Suspect]
     Active Substance: DULOXETINE HYDROCHLORIDE
     Indication: AFFECTIVE DISORDER
     Route: 048
     Dates: end: 20160208
  18. RAMIPRIL. [Concomitant]
     Active Substance: RAMIPRIL
     Route: 065
  19. LEVOTHYROX [Concomitant]
     Active Substance: LEVOTHYROXINE
     Route: 065
  20. COUMADINE [Suspect]
     Active Substance: WARFARIN SODIUM
     Indication: CARDIAC PACEMAKER INSERTION
     Route: 048
     Dates: start: 20160311
  21. AMIODARONE [Concomitant]
     Active Substance: AMIODARONE
     Route: 065
  22. INEXIUM [Concomitant]
     Active Substance: ESOMEPRAZOLE
     Route: 065
  23. MACROGOL 4000 [Concomitant]
     Active Substance: POLYETHYLENE GLYCOL 4000
     Route: 065

REACTIONS (8)
  - Ear haemorrhage [Unknown]
  - Diarrhoea [Recovered/Resolved]
  - Pyrexia [Unknown]
  - Hallucination, visual [Unknown]
  - Off label use [Unknown]
  - Completed suicide [Fatal]
  - Refusal of treatment by patient [Unknown]
  - Product use issue [Unknown]

NARRATIVE: CASE EVENT DATE: 201602
